FAERS Safety Report 18201919 (Version 1)
Quarter: 2020Q3

REPORT INFORMATION
  Report Type: Spontaneous
  Country: US (occurrence: US)
  Receive Date: 20200827
  Receipt Date: 20200827
  Transmission Date: 20201103
  Serious: No
  Sender: FDA-Public Use
  Company Number: None

PATIENT
  Age: 71 Year
  Sex: Male
  Weight: 102 kg

DRUGS (1)
  1. REMDESIVIR. [Suspect]
     Active Substance: REMDESIVIR
     Indication: COVID-19 TREATMENT
     Route: 041
     Dates: start: 20200825

REACTIONS (3)
  - Infusion site bruising [None]
  - Extravasation [None]
  - Infusion site pain [None]

NARRATIVE: CASE EVENT DATE: 20200826
